FAERS Safety Report 24075353 (Version 2)
Quarter: 2024Q3

REPORT INFORMATION
  Report Type: Report from Study
  Country: FR (occurrence: None)
  Receive Date: 20240710
  Receipt Date: 20240711
  Transmission Date: 20241017
  Serious: Yes (Other)
  Sender: ASTRAZENECA
  Company Number: 2024A128915

PATIENT
  Sex: Male
  Weight: 115 kg

DRUGS (6)
  1. IMFINZI [Suspect]
     Active Substance: DURVALUMAB
     Indication: HER2 positive biliary tract cancer
     Route: 042
     Dates: start: 20240419
  2. IMFINZI [Suspect]
     Active Substance: DURVALUMAB
     Indication: HER2 positive biliary tract cancer
     Route: 042
     Dates: start: 20240521
  3. IMFINZI [Suspect]
     Active Substance: DURVALUMAB
     Indication: HER2 positive biliary tract cancer
     Route: 042
     Dates: start: 20240618
  4. GEMCITABINE CISPLATIN CHEMOTHERAPY [Concomitant]
     Indication: HER2 positive biliary tract cancer
     Dates: start: 20240419
  5. GEMCITABINE CISPLATIN CHEMOTHERAPY [Concomitant]
     Indication: HER2 positive biliary tract cancer
     Dates: start: 20240521
  6. GEMCITABINE CISPLATIN CHEMOTHERAPY [Concomitant]
     Indication: HER2 positive biliary tract cancer
     Dates: start: 20240618

REACTIONS (3)
  - Thrombocytopenia [Unknown]
  - Toxicity to various agents [Unknown]
  - Rash [Unknown]
